FAERS Safety Report 8979393 (Version 1)
Quarter: 2012Q4

REPORT INFORMATION
  Report Type: 
  Country: FR (occurrence: FR)
  Receive Date: 20121221
  Receipt Date: 20121221
  Transmission Date: 20130627
  Serious: Yes (Life-Threatening)
  Sender: FDA-Public Use
  Company Number: FR-009507513-1212FRA006612

PATIENT
  Age: 46 Year
  Sex: Female

DRUGS (10)
  1. ESMERON [Suspect]
     Indication: GENERAL ANAESTHESIA
     Dosage: 1 DF, Once
     Route: 042
     Dates: start: 20120618, end: 20120618
  2. SUFENTA [Suspect]
     Indication: GENERAL ANAESTHESIA
     Dosage: 1 DF, Once
     Route: 042
     Dates: start: 20120618, end: 20120618
  3. DIPRIVAN [Suspect]
     Indication: GENERAL ANAESTHESIA
     Dosage: 1 DF, Once
     Route: 042
     Dates: start: 20120618, end: 20120618
  4. VENTOLINE (ALBUTEROL) [Concomitant]
     Indication: PRODUCT USED FOR UNKNOWN INDICATION
  5. LEVOTHYROX [Concomitant]
     Indication: PRODUCT USED FOR UNKNOWN INDICATION
  6. INEXIUM [Concomitant]
     Indication: PRODUCT USED FOR UNKNOWN INDICATION
  7. AZINC [Concomitant]
     Indication: PRODUCT USED FOR UNKNOWN INDICATION
  8. VITAMIN B12 [Concomitant]
     Indication: PRODUCT USED FOR UNKNOWN INDICATION
  9. UVEDOSE [Concomitant]
     Indication: PRODUCT USED FOR UNKNOWN INDICATION
  10. DELURSAN [Concomitant]
     Indication: PRODUCT USED FOR UNKNOWN INDICATION

REACTIONS (2)
  - Bronchospasm [Recovered/Resolved]
  - Circulatory collapse [Recovered/Resolved]
